FAERS Safety Report 7209475-6 (Version None)
Quarter: 2010Q4

REPORT INFORMATION
  Report Type: 
  Country: None (occurrence: None)
  Receive Date: 20101222
  Receipt Date: 20101208
  Transmission Date: 20110411
  Serious: Yes (Other)
  Sender: FDA-Public Use
  Company Number: 2010005471

PATIENT

DRUGS (5)
  1. TARCEVA [Suspect]
     Indication: NON-SMALL CELL LUNG CANCER
     Dosage: ORAL
     Route: 048
  2. VITAMINS (MULTIVITAMINS) [Concomitant]
  3. UREPEARL (UREA) [Concomitant]
  4. LOPERAMIDE HCL [Concomitant]
  5. NEO-MEDROL (NEO-MEDROL) [Concomitant]

REACTIONS (1)
  - FRACTURE [None]
